FAERS Safety Report 21003403 (Version 4)
Quarter: 2023Q1

REPORT INFORMATION
  Report Type: Report from Study
  Country: US (occurrence: US)
  Receive Date: 20220624
  Receipt Date: 20230109
  Transmission Date: 20230418
  Serious: Yes (Hospitalization)
  Sender: FDA-Public Use
  Company Number: US-PFIZER INC-PV202200002361

PATIENT
  Age: 52 Year
  Sex: Female
  Weight: 89.977 kg

DRUGS (12)
  1. FLUDARABINE PHOSPHATE [Suspect]
     Active Substance: FLUDARABINE PHOSPHATE
     Dosage: 25 MG/M2, 1X/DAY X 5 DAYS
     Route: 042
     Dates: start: 20220314, end: 20220318
  2. ZOSYN [Suspect]
     Active Substance: PIPERACILLIN SODIUM\TAZOBACTAM SODIUM
     Dosage: 4.5 G, ONCE
     Route: 042
     Dates: start: 20220321, end: 20220321
  3. ZOSYN [Suspect]
     Active Substance: PIPERACILLIN SODIUM\TAZOBACTAM SODIUM
     Dosage: 4.5 G, EVERY (Q) 8 HOURS
     Route: 042
     Dates: start: 20220326, end: 20220326
  4. CYCLOPHOSPHAMIDE [Suspect]
     Active Substance: CYCLOPHOSPHAMIDE
     Dosage: 60 MG/KG, 1X/DAY X 2 DAYS
     Route: 042
     Dates: start: 20220314, end: 20220315
  5. ALDESLEUKIN [Suspect]
     Active Substance: ALDESLEUKIN
     Dosage: 52 MILLION, EVERY 8 HOURS
     Route: 042
     Dates: start: 20220322
  6. VANCOMYCIN [Concomitant]
     Active Substance: VANCOMYCIN
     Dosage: 1750 MG, ONCE
     Route: 042
     Dates: start: 20220321, end: 20220321
  7. VANCOMYCIN [Concomitant]
     Active Substance: VANCOMYCIN
     Dosage: 1.5 G, EVERY (Q) 12 HOURS
     Route: 042
     Dates: start: 20220322, end: 20220322
  8. ACYCLOVIR [Concomitant]
     Active Substance: ACYCLOVIR
     Dosage: 400 MG, 2X/DAY
     Route: 048
     Dates: start: 20220321, end: 20220321
  9. ACYCLOVIR [Concomitant]
     Active Substance: ACYCLOVIR
     Dosage: 100 MG, EVERY (Q) 12 HOURS
     Route: 042
     Dates: start: 20220321, end: 20220402
  10. LEVOFLOXACIN [Concomitant]
     Active Substance: LEVOFLOXACIN
     Dosage: 750 MG, EVERY (Q) 24 HOURS
     Route: 042
     Dates: start: 20220321, end: 20220321
  11. FLUCONAZOLE [Concomitant]
     Active Substance: FLUCONAZOLE
     Dosage: 400 MG, DAILY (QD)
     Route: 048
     Dates: start: 20220321, end: 20220325
  12. CEFAZOLIN [Concomitant]
     Active Substance: CEFAZOLIN
     Dosage: 2 G, EVERY (Q) 8 HOURS
     Route: 042
     Dates: start: 20220321, end: 20220325

REACTIONS (2)
  - Febrile neutropenia [Recovered/Resolved]
  - Thrombocytopenia [Recovered/Resolved]

NARRATIVE: CASE EVENT DATE: 20220321
